FAERS Safety Report 15504410 (Version 1)
Quarter: 2018Q4

REPORT INFORMATION
  Report Type: Spontaneous
  Country: US (occurrence: US)
  Receive Date: 20181009
  Receipt Date: 20181009
  Transmission Date: 20190205
  Serious: Yes (Hospitalization)
  Sender: FDA-Public Use
  Company Number: None

PATIENT
  Age: 57 Year
  Sex: Female

DRUGS (55)
  1. SUPER B-100 TAB [Concomitant]
  2. GABAPENTINE TAB 600MG [Concomitant]
  3. NEXIUM CAP 40MG [Concomitant]
  4. TOPAMAX TAB 200MG [Concomitant]
  5. RANITIDINE TAB 300MG [Concomitant]
  6. SUPER B [Concomitant]
  7. LIDOCAINE. [Concomitant]
     Active Substance: LIDOCAINE
  8. EPIPEN [Concomitant]
     Active Substance: EPINEPHRINE
  9. SUDAFED 12H [Concomitant]
  10. XOLAIR [Suspect]
     Active Substance: OMALIZUMAB
     Indication: RESPIRATORY DISORDER
     Route: 058
     Dates: start: 20141230
  11. ALBUTEROL NEB 1.25MG/3 [Concomitant]
  12. IPRATROPOUM SPR 0.06% [Concomitant]
  13. VITAMIN B12 TAB 1000MCG [Concomitant]
  14. BUDESONIDE SUS 0.5MG/2 [Concomitant]
  15. PREDNISONE TAB [Concomitant]
     Active Substance: PREDNISONE
  16. VIACTIV [Concomitant]
     Active Substance: CALCIUM\VITAMIN D\VITAMIN K5
  17. AFRIN [Concomitant]
     Active Substance: OXYMETAZOLINE
  18. HYDROCO/APAP TAB 5.325MG [Concomitant]
  19. GUAIFENESIN TAB 400 MG [Concomitant]
  20. NYSTATIN. [Concomitant]
     Active Substance: NYSTATIN
  21. CETRIZINE TAB 10MG [Concomitant]
  22. TYLENOL TAB 500MG [Concomitant]
  23. PREDNISONE TAB 10MG [Concomitant]
     Active Substance: PREDNISONE
  24. TRAZODONE TAB 100MG [Concomitant]
  25. FLUTICASONE SPR 50MCG [Concomitant]
  26. CALCIUM CARB [Concomitant]
     Active Substance: CALCIUM CARBONATE
  27. MULTIVITAMIN TAB ADULTS [Concomitant]
  28. CIPROFLOXACN TAB 500MG [Concomitant]
  29. ALVESCO AER 160MCG [Concomitant]
  30. SYMBICORT [Concomitant]
     Active Substance: BUDESONIDE\FORMOTEROL FUMARATE DIHYDRATE
  31. HYDROCO/APAP [Concomitant]
     Active Substance: ACETAMINOPHEN\HYDROCODONE
  32. AZELASTINE SPR 0.1% [Concomitant]
  33. CALCIUM TAB 600MG [Concomitant]
  34. DEXAMETHASON TAB  0.75 MF [Concomitant]
  35. FLUTICASONE SPR 50MCG [Concomitant]
  36. VENTOLIN HFA AER [Concomitant]
  37. GUAIFENESIN TAB 200MG [Concomitant]
  38. QNASL [Concomitant]
     Active Substance: BECLOMETHASONE DIPROPIONATE
  39. MONTELUKAST [Concomitant]
     Active Substance: MONTELUKAST SODIUM
  40. TRAZODONE TAB 100MG [Concomitant]
  41. FLUDROCORT TAB 0.1MG [Concomitant]
  42. B12-ACTIVE 1MG [Concomitant]
  43. ALVESCO AER 160MCG [Concomitant]
  44. HYDROCO/APAP TAB 5-325MG [Concomitant]
     Active Substance: ACETAMINOPHEN\HYDROCODONE
  45. PROAIR HFA [Concomitant]
     Active Substance: ALBUTEROL SULFATE
  46. ALVESCO [Concomitant]
     Active Substance: CICLESONIDE
  47. AZITHROMYCIN ANHYDROUS. [Concomitant]
     Active Substance: AZITHROMYCIN ANHYDROUS
  48. LIVALO TAB 2MG [Concomitant]
  49. D3 CAP 2000UNIT [Concomitant]
  50. B12-ACTIVE 1MG [Concomitant]
  51. SYMBICORT AER 160-4.5 [Concomitant]
  52. FLUDROCORT TAB 0.1MG [Concomitant]
  53. SYMBICORT AER 160-4.5 [Concomitant]
  54. BUDESONIDE. [Concomitant]
     Active Substance: BUDESONIDE
  55. AMOXICILLIN. [Concomitant]
     Active Substance: AMOXICILLIN

REACTIONS (1)
  - Viral infection [None]

NARRATIVE: CASE EVENT DATE: 20180923
